FAERS Safety Report 5448900-8 (Version None)
Quarter: 2007Q3

REPORT INFORMATION
  Report Type: 
  Country: None (occurrence: None)
  Receive Date: 20070911
  Receipt Date: 20070611
  Transmission Date: 20080115
  Serious: No
  Sender: FDA-Public Use
  Company Number: US-BRISTOL-MYERS SQUIBB COMPANY-13810494

PATIENT
  Sex: Female
  Weight: 68 kg

DRUGS (9)
  1. EMSAM [Suspect]
     Indication: DEPRESSION
     Route: 062
  2. KEPPRA [Concomitant]
  3. XANAX [Concomitant]
  4. KLONOPIN [Concomitant]
  5. ZYPREXA [Concomitant]
  6. METHYLPHENIDATE HCL [Concomitant]
  7. OMEGA 3 FATTY ACID [Concomitant]
  8. MULTI-VITAMIN [Concomitant]
  9. OXYMETAZOLINE HCL [Concomitant]

REACTIONS (3)
  - BLOOD PRESSURE INCREASED [None]
  - DRUG INEFFECTIVE [None]
  - TACHYCARDIA [None]
